FAERS Safety Report 8378752-8 (Version None)
Quarter: 2012Q2

REPORT INFORMATION
  Report Type: 
  Country: None (occurrence: None)
  Receive Date: 20120522
  Receipt Date: 20120430
  Transmission Date: 20120825
  Serious: Yes (Other)
  Sender: FDA-Public Use
  Company Number: PHHY2012BR037833

PATIENT
  Sex: Male
  Weight: 77 kg

DRUGS (3)
  1. EXELON [Suspect]
     Indication: MEMORY IMPAIRMENT
     Dosage: 9MG/5CM2, ONE PATCH DAILY
     Route: 062
     Dates: start: 20111201
  2. EXELON [Suspect]
     Dosage: 18MG/10CM2, ONE PATCH DAILY
     Route: 062
  3. WARFARIN SODIUM [Concomitant]
     Indication: COAGULOPATHY

REACTIONS (1)
  - DELIRIUM [None]
